FAERS Safety Report 9583968 (Version 1)
Quarter: 2013Q4

REPORT INFORMATION
  Report Type: Spontaneous
  Country: US (occurrence: US)
  Receive Date: 20131002
  Receipt Date: 20131002
  Transmission Date: 20140711
  Serious: No
  Sender: FDA-Public Use
  Company Number: US-AMGEN-USASP2013050137

PATIENT
  Age: 55 Year
  Sex: Male

DRUGS (1)
  1. ENBREL [Suspect]
     Indication: RHEUMATOID ARTHRITIS
     Dosage: UNK MG, QWK
     Route: 065
     Dates: start: 20111201

REACTIONS (4)
  - Weight increased [Not Recovered/Not Resolved]
  - Arthralgia [Not Recovered/Not Resolved]
  - Rash pustular [Not Recovered/Not Resolved]
  - Rash erythematous [Not Recovered/Not Resolved]
